FAERS Safety Report 7899897-2 (Version None)
Quarter: 2011Q4

REPORT INFORMATION
  Report Type: 
  Country: None (occurrence: None)
  Receive Date: 20111107
  Receipt Date: 20111004
  Transmission Date: 20120403
  Serious: No
  Sender: FDA-Public Use
  Company Number: US-AMGEN-USASP2011043895

PATIENT
  Sex: Female

DRUGS (15)
  1. METHOTREXATE [Concomitant]
     Dosage: 2.5 MG, UNK
  2. PREDNISONE [Concomitant]
     Dosage: 6 MG, UNK
  3. ASPIRIN [Concomitant]
     Dosage: 81 MG, UNK
  4. LISINOPRIL [Concomitant]
     Dosage: 20 MG, UNK
  5. KLOR-CON [Concomitant]
  6. ENBREL [Suspect]
     Indication: RHEUMATOID ARTHRITIS
     Dosage: 50 MG, QWK
     Dates: start: 20090101
  7. FOLIC ACID [Concomitant]
     Dosage: 1 MG, UNK
  8. FLUOXETINE HCL [Concomitant]
     Dosage: 40 MG, UNK
  9. SYNTHROID [Concomitant]
     Dosage: 112 UNK, UNK
  10. PANTOPRAZOLE [Concomitant]
     Dosage: 40 MG, UNK
  11. PERCOCET [Concomitant]
     Dosage: 325 MG, UNK
  12. CALCIUM +D                         /00188401/ [Concomitant]
  13. PLAVIX [Concomitant]
     Dosage: 75 MG, UNK
  14. LIPITOR [Concomitant]
     Dosage: 40 MG, UNK
  15. LASIX [Concomitant]
     Dosage: 40 MG, UNK

REACTIONS (8)
  - ASTHENIA [None]
  - ARTHRALGIA [None]
  - MALAISE [None]
  - UNDERDOSE [None]
  - HYPOKINESIA [None]
  - THERAPEUTIC RESPONSE DECREASED [None]
  - PAIN [None]
  - RHEUMATOID ARTHRITIS [None]
